FAERS Safety Report 6818452-6 (Version None)
Quarter: 2010Q3

REPORT INFORMATION
  Report Type: 
  Country: None (occurrence: None)
  Receive Date: 20100706
  Receipt Date: 20080804
  Transmission Date: 20110219
  Serious: No
  Sender: FDA-Public Use
  Company Number: US-PFIZER INC-2008038660

PATIENT
  Sex: Male

DRUGS (2)
  1. AZITHROMYCIN [Suspect]
     Indication: TONSILLAR DISORDER
     Route: 048
     Dates: start: 20080327
  2. GALENIC /CODEINE/PROMETHAZINE/ [Concomitant]
     Indication: COUGH

REACTIONS (2)
  - CIRCUMSTANCE OR INFORMATION CAPABLE OF LEADING TO MEDICATION ERROR [None]
  - VOMITING [None]
